FAERS Safety Report 11916755 (Version 12)
Quarter: 2017Q1

REPORT INFORMATION
  Report Type: Report from Study
  Country: CA (occurrence: CA)
  Receive Date: 20160114
  Receipt Date: 20170216
  Transmission Date: 20170428
  Serious: Yes (Hospitalization, Other)
  Sender: FDA-Public Use
  Company Number: CA-JNJFOC-20160104492

PATIENT
  Age: 74 Year
  Sex: Male

DRUGS (2)
  1. IMBRUVICA [Suspect]
     Active Substance: IBRUTINIB
     Indication: CHRONIC LYMPHOCYTIC LEUKAEMIA
     Route: 048
     Dates: start: 20150227
  2. IMBRUVICA [Suspect]
     Active Substance: IBRUTINIB
     Indication: CHRONIC LYMPHOCYTIC LEUKAEMIA
     Route: 048
     Dates: start: 20170203

REACTIONS (28)
  - Diarrhoea [Recovered/Resolved]
  - Influenza [Unknown]
  - Eye disorder [Not Recovered/Not Resolved]
  - Haematochezia [Recovered/Resolved]
  - Haemorrhage [Unknown]
  - Back pain [Unknown]
  - Rash erythematous [Recovered/Resolved]
  - Fall [Recovered/Resolved]
  - Contusion [Recovered/Resolved]
  - Ophthalmic herpes zoster [Recovered/Resolved with Sequelae]
  - Herpes zoster [Recovering/Resolving]
  - Visual impairment [Not Recovered/Not Resolved]
  - Skin discolouration [Not Recovered/Not Resolved]
  - Bronchitis [Unknown]
  - Decreased appetite [Recovering/Resolving]
  - Neck pain [Not Recovered/Not Resolved]
  - Cataract [Unknown]
  - Contusion [Recovered/Resolved]
  - Diarrhoea [Recovered/Resolved]
  - Blister [Not Recovered/Not Resolved]
  - Tooth disorder [Not Recovered/Not Resolved]
  - Night sweats [Recovering/Resolving]
  - Cellulitis [Not Recovered/Not Resolved]
  - Bowen^s disease [Not Recovered/Not Resolved]
  - Skin cancer [Not Recovered/Not Resolved]
  - Diplopia [Recovering/Resolving]
  - Productive cough [Not Recovered/Not Resolved]
  - Asthenia [Unknown]

NARRATIVE: CASE EVENT DATE: 201512
